FAERS Safety Report 7093894-5 (Version None)
Quarter: 2010Q4

REPORT INFORMATION
  Report Type: 
  Country: None (occurrence: None)
  Receive Date: 20101110
  Receipt Date: 20101021
  Transmission Date: 20110411
  Serious: Yes (Hospitalization, Other)
  Sender: FDA-Public Use
  Company Number: US-BAYER-201016017NA

PATIENT
  Age: 25 Year
  Sex: Female
  Weight: 100 kg

DRUGS (8)
  1. YAZ [Suspect]
     Indication: PRODUCT USED FOR UNKNOWN INDICATION
     Route: 048
  2. YASMIN [Suspect]
     Indication: PRODUCT USED FOR UNKNOWN INDICATION
     Route: 048
     Dates: start: 20060805, end: 20060101
  3. COUMADIN [Concomitant]
  4. LOVENOX [Concomitant]
  5. NORCO [Concomitant]
  6. NUBAIN [Concomitant]
  7. PHENERGEN [Concomitant]
  8. XANAX [Concomitant]

REACTIONS (9)
  - ABDOMINAL PAIN UPPER [None]
  - CHOLECYSTITIS CHRONIC [None]
  - CHOLESTEROSIS [None]
  - DEEP VEIN THROMBOSIS [None]
  - IMPAIRED HEALING [None]
  - INTERNATIONAL NORMALISED RATIO INCREASED [None]
  - NAUSEA [None]
  - VENOUS THROMBOSIS [None]
  - VOMITING [None]
